FAERS Safety Report 20509268 (Version 1)
Quarter: 2022Q1

REPORT INFORMATION
  Report Type: Spontaneous
  Country: ES (occurrence: ES)
  Receive Date: 20220223
  Receipt Date: 20220223
  Transmission Date: 20220424
  Serious: Yes (Hospitalization)
  Sender: FDA-Public Use
  Company Number: ES-AEMPS-1108410

PATIENT
  Age: 72 Year
  Sex: Male

DRUGS (8)
  1. BISOPROLOL [Suspect]
     Active Substance: BISOPROLOL
     Indication: Myocardial ischaemia
     Dosage: UNK (5.0MG C/24H)
     Route: 048
     Dates: start: 20180116, end: 20200904
  2. ALPRAZOLAM CINFA [Concomitant]
     Indication: Insomnia
     Dosage: UNK (1.0 MG C/24 H NOC)
     Route: 048
     Dates: start: 20200706
  3. Cafinitrina [Concomitant]
     Indication: Angina pectoris
     Dosage: UNK (1.0 MG C/24 H)
     Route: 060
     Dates: start: 20180116
  4. CHOLECALCIFEROL [Concomitant]
     Active Substance: CHOLECALCIFEROL
     Indication: Product used for unknown indication
     Dosage: UNK (1600.0 UI DE)
     Route: 048
     Dates: start: 20170613
  5. EXELON [Concomitant]
     Active Substance: RIVASTIGMINE TARTRATE
     Indication: Dementia Alzheimer^s type
     Dosage: UNK (9.5 MG C/24 H)
     Route: 065
     Dates: start: 20200408
  6. OMEPRAZOLE [Concomitant]
     Active Substance: OMEPRAZOLE
     Indication: Gastritis
     Dosage: UNK (20.0 MG A-DE)
     Route: 048
     Dates: start: 20180116
  7. PARACETAMOL CINFA [Concomitant]
     Indication: Pain
     Dosage: UNK (650.0 MG DECOCE)
     Route: 048
     Dates: start: 20200820
  8. SPIRIVA RESPIMAT [Concomitant]
     Active Substance: TIOTROPIUM BROMIDE
     Indication: Bronchitis
     Dosage: UNK (2.0 PUFF W/24H)
     Route: 050
     Dates: start: 20180116

REACTIONS (1)
  - Sinus bradycardia [Recovered/Resolved]

NARRATIVE: CASE EVENT DATE: 20200904
